FAERS Safety Report 8623278-7 (Version None)
Quarter: 2012Q3

REPORT INFORMATION
  Report Type: 
  Country: None (occurrence: None)
  Receive Date: 20120827
  Receipt Date: 20120816
  Transmission Date: 20120928
  Serious: Yes (Hospitalization, Other)
  Sender: FDA-Public Use
  Company Number: FR-ASTRAZENECA-2012SE60217

PATIENT
  Age: 87 Year
  Sex: Female

DRUGS (7)
  1. ALDACTONE [Suspect]
     Route: 048
     Dates: end: 20111202
  2. BRICANYL [Concomitant]
  3. ATROVENT [Concomitant]
  4. LASIX [Suspect]
     Route: 048
     Dates: end: 20111202
  5. NEXIUM [Suspect]
     Route: 048
     Dates: end: 20111205
  6. ATACAND [Concomitant]
  7. PREVISCAN [Concomitant]

REACTIONS (3)
  - HYPONATRAEMIA [None]
  - GENERAL PHYSICAL HEALTH DETERIORATION [None]
  - RENAL FAILURE [None]
